FAERS Safety Report 12388293 (Version 1)
Quarter: 2016Q2

REPORT INFORMATION
  Report Type: Report from Study
  Country: BR (occurrence: BR)
  Receive Date: 20160520
  Receipt Date: 20160520
  Transmission Date: 20160815
  Serious: Yes (Life-Threatening, Other)
  Sender: FDA-Public Use
  Company Number: PHHY2016BR069112

PATIENT
  Sex: Female
  Weight: 166 kg

DRUGS (7)
  1. RIVOTRIL [Concomitant]
     Active Substance: CLONAZEPAM
     Indication: SLEEP DISORDER
     Route: 065
  2. OXCARBAZEPINE. [Concomitant]
     Active Substance: OXCARBAZEPINE
     Indication: SLEEP DISORDER
     Route: 065
  3. CARBAMAZEPINE. [Concomitant]
     Active Substance: CARBAMAZEPINE
     Indication: AFFECTIVE DISORDER
     Dosage: 300 MG, BID
     Route: 048
  4. TRILEPTAL [Suspect]
     Active Substance: OXCARBAZEPINE
     Indication: PRODUCT USED FOR UNKNOWN INDICATION
     Route: 048
  5. CLONAZEPAM. [Concomitant]
     Active Substance: CLONAZEPAM
     Indication: SLEEP DISORDER
     Route: 065
  6. PAROXETINE HYDROCHLORIDE. [Concomitant]
     Active Substance: PAROXETINE HYDROCHLORIDE
     Indication: NERVOUS SYSTEM DISORDER
     Dosage: 20 MG, BID
     Route: 048
  7. OLEPTAL [Concomitant]
     Active Substance: OXCARBAZEPINE
     Indication: SLEEP DISORDER
     Route: 065

REACTIONS (10)
  - Blood pressure abnormal [Unknown]
  - Nervousness [Unknown]
  - Breast pain [Unknown]
  - Crying [Unknown]
  - Apparent death [Unknown]
  - Weight decreased [Unknown]
  - Depression [Unknown]
  - Affect lability [Unknown]
  - Dysstasia [Unknown]
  - Diabetes mellitus [Unknown]
